FAERS Safety Report 10166398 (Version 1)
Quarter: 2014Q2

REPORT INFORMATION
  Report Type: Spontaneous
  Country: US (occurrence: None)
  Receive Date: 20140509
  Receipt Date: 20140509
  Transmission Date: 20141212
  Serious: No
  Sender: FDA-Public Use
  Company Number: None

PATIENT
  Age: 45 Year
  Sex: Female
  Weight: 83 kg

DRUGS (1)
  1. OCTAGAM [Suspect]
     Indication: NEUROPATHY PERIPHERAL
     Dosage: 23 GM QDX5D IV
     Route: 042
     Dates: start: 20140407, end: 20140411

REACTIONS (1)
  - Rash [None]
